FAERS Safety Report 13862843 (Version 1)
Quarter: 2017Q3

REPORT INFORMATION
  Report Type: Spontaneous
  Country: US (occurrence: US)
  Receive Date: 20170814
  Receipt Date: 20170814
  Transmission Date: 20171127
  Serious: No
  Sender: FDA-Public Use
  Company Number: US-TEVA-785337USA

PATIENT
  Sex: Female

DRUGS (1)
  1. IMATINIB MESYLATE. [Suspect]
     Active Substance: IMATINIB MESYLATE
     Dates: start: 2013

REACTIONS (5)
  - Oral pain [Unknown]
  - Glossodynia [Unknown]
  - Dysgeusia [Unknown]
  - Abscess [Unknown]
  - Dental caries [Unknown]
